FAERS Safety Report 12498490 (Version 1)
Quarter: 2016Q2

REPORT INFORMATION
  Report Type: Spontaneous
  Country: KP (occurrence: KP)
  Receive Date: 20160627
  Receipt Date: 20160627
  Transmission Date: 20160815
  Serious: Yes (Hospitalization, Other)
  Sender: FDA-Public Use
  Company Number: KP-ALEMBIC PHARMACUETICALS LIMITED-2016SCAL000506

PATIENT

DRUGS (10)
  1. PENICILLIN G                       /00000901/ [Concomitant]
     Active Substance: PENICILLIN G
     Indication: STREPTOCOCCAL INFECTION
     Dosage: 4 MILLION UNITS EVERY 4 HOURS
  2. CEFTRIAXONE. [Concomitant]
     Active Substance: CEFTRIAXONE
     Indication: INFECTIVE SPONDYLITIS
     Dosage: 2 G, QD
     Route: 042
  3. CEFTRIAXONE. [Concomitant]
     Active Substance: CEFTRIAXONE
     Indication: PARASPINAL ABSCESS
  4. IMIPENEM [Concomitant]
     Active Substance: IMIPENEM
     Indication: URINARY TRACT INFECTION
     Dosage: 500 MG, QID
  5. IMIPENEM [Concomitant]
     Active Substance: IMIPENEM
     Indication: BACTERAEMIA
  6. VANCOMYCIN [Concomitant]
     Active Substance: VANCOMYCIN
     Indication: CLOSTRIDIUM DIFFICILE INFECTION
     Dosage: 500 MG, QID (EVERY 6 HOURS)
  7. METRONIDAZOLE. [Concomitant]
     Active Substance: METRONIDAZOLE
     Indication: CLOSTRIDIUM DIFFICILE INFECTION
     Dosage: UNK UNK, TID, (EVERY 8 HOURS)
     Route: 042
  8. TEICOPLANIN [Concomitant]
     Active Substance: TEICOPLANIN
     Indication: INFECTIVE SPONDYLITIS
     Dosage: 200 MG, QD
     Route: 042
  9. METRONIDAZOLE. [Suspect]
     Active Substance: METRONIDAZOLE
     Indication: CLOSTRIDIUM DIFFICILE INFECTION
     Dosage: 500 MG, TID (EVERY 8 HOURS)
     Route: 048
  10. TEICOPLANIN [Concomitant]
     Active Substance: TEICOPLANIN
     Indication: PARASPINAL ABSCESS

REACTIONS (2)
  - Ileus paralytic [Recovered/Resolved]
  - Diarrhoea [Recovered/Resolved]
